FAERS Safety Report 25871048 (Version 1)
Quarter: 2025Q4

REPORT INFORMATION
  Report Type: Spontaneous
  Country: EU (occurrence: EU)
  Receive Date: 20251001
  Receipt Date: 20251001
  Transmission Date: 20260118
  Serious: Yes (Hospitalization, Other)
  Sender: ALKEM
  Company Number: EU-ALKEM LABORATORIES LIMITED-BE-ALKEM-2025-10304

PATIENT
  Age: 56 Year
  Sex: Male

DRUGS (2)
  1. CAPECITABINE [Suspect]
     Active Substance: CAPECITABINE
     Indication: Adenocarcinoma
     Dosage: UNK (1,000 MILLIGRAM PER SQUARE MILLIGRAM) (EVERY 3 WEEKS) (FIRST CYCLE WAS STARTED WITH 50 PERCENT
     Route: 065
  2. OXALIPLATIN [Concomitant]
     Active Substance: OXALIPLATIN
     Indication: Adenocarcinoma
     Dosage: UNK (130 MILLIGRAM PER SQUARE MILLIGRAM) (ON DAY 1) (CAPOX)
     Route: 065

REACTIONS (7)
  - Toxicity to various agents [Unknown]
  - Febrile neutropenia [Recovering/Resolving]
  - Erythema [Unknown]
  - Stomatitis [Unknown]
  - Vomiting [Unknown]
  - Diarrhoea [Unknown]
  - Mucosal inflammation [Recovering/Resolving]
